FAERS Safety Report 25025428 (Version 1)
Quarter: 2025Q1

REPORT INFORMATION
  Report Type: Spontaneous
  Country: DE (occurrence: DE)
  Receive Date: 20250228
  Receipt Date: 20250228
  Transmission Date: 20250408
  Serious: Yes (Other)
  Sender: ASCEND THERAPEUTICS US, LLC
  Company Number: DE-Ascend Therapeutics US, LLC-2172008

PATIENT
  Age: 55 Year
  Sex: Female

DRUGS (4)
  1. ESTROGEL [Suspect]
     Active Substance: ESTRADIOL
     Indication: Product used for unknown indication
  2. PROGESTERONE [Suspect]
     Active Substance: PROGESTERONE
  3. ESTRIOL [Suspect]
     Active Substance: ESTRIOL
  4. ESTRADIOL [Suspect]
     Active Substance: ESTRADIOL

REACTIONS (2)
  - Uterine leiomyoma [Unknown]
  - Product use issue [Unknown]
